FAERS Safety Report 10310320 (Version 1)
Quarter: 2014Q3

REPORT INFORMATION
  Report Type: Spontaneous
  Country: US (occurrence: US)
  Receive Date: 20140717
  Receipt Date: 20140717
  Transmission Date: 20150326
  Serious: No
  Sender: FDA-Public Use
  Company Number: US-PFIZER INC-2014199419

PATIENT
  Age: 33 Year
  Sex: Female
  Weight: 56.69 kg

DRUGS (2)
  1. VERAPAMIL [Concomitant]
     Active Substance: VERAPAMIL HYDROCHLORIDE
     Dosage: 120 MG, 1X/DAY
  2. EFFEXOR XR [Suspect]
     Active Substance: VENLAFAXINE HYDROCHLORIDE
     Indication: MIGRAINE
     Dosage: 75 MG, 1X/DAY
     Route: 048
     Dates: start: 20140712, end: 20140714

REACTIONS (3)
  - Dyspnoea [Unknown]
  - Chest pain [Unknown]
  - Sensory loss [Unknown]

NARRATIVE: CASE EVENT DATE: 201407
